FAERS Safety Report 6729847-3 (Version None)
Quarter: 2010Q2

REPORT INFORMATION
  Report Type: 
  Country: None (occurrence: None)
  Receive Date: 20100513
  Receipt Date: 20100507
  Transmission Date: 20101027
  Serious: Yes (Life-Threatening, Hospitalization)
  Sender: FDA-Public Use
  Company Number: 2010AL002724

PATIENT
  Age: 55 Year
  Sex: Female

DRUGS (5)
  1. FLUOXETINE [Suspect]
     Indication: DEPRESSION
     Dosage: 80 MG;QD;PO
     Route: 048
  2. HALOPERIDOL [Concomitant]
  3. ZOLPIDEM [Concomitant]
  4. OMEPRAZOLE [Concomitant]
  5. AMITRIPTYLINE [Concomitant]

REACTIONS (2)
  - ACUTE INTERSTITIAL PNEUMONITIS [None]
  - PULMONARY VASCULITIS [None]
